FAERS Safety Report 22072067 (Version 1)
Quarter: 2023Q1

REPORT INFORMATION
  Report Type: Report from Study
  Country: BR (occurrence: BR)
  Receive Date: 20230308
  Receipt Date: 20230308
  Transmission Date: 20230418
  Serious: Yes (Other)
  Sender: FDA-Public Use
  Company Number: BR-CELLTRION INC.-2023BR004833

PATIENT

DRUGS (4)
  1. INFLIXIMAB [Suspect]
     Active Substance: INFLIXIMAB
     Indication: Colitis ulcerative
     Dosage: 3 AMPOULES EVERY 8 WEEKS
     Route: 042
     Dates: start: 20221030
  2. MESALAMINE [Concomitant]
     Active Substance: MESALAMINE
     Indication: Colitis ulcerative
     Dosage: 2 PILLS PER DAY
     Route: 048
     Dates: start: 2009
  3. AZATHIOPRINE [Concomitant]
     Active Substance: AZATHIOPRINE
     Indication: Colitis ulcerative
     Dosage: 2 PILLS PER DAY
     Route: 048
     Dates: start: 2020
  4. MESALAMINE [Concomitant]
     Active Substance: MESALAMINE
     Indication: Colitis ulcerative
     Dosage: 1 SUPPOSITORY PER DAY
     Route: 054
     Dates: start: 2009

REACTIONS (5)
  - Haematochezia [Unknown]
  - Flatulence [Unknown]
  - Abdominal discomfort [Unknown]
  - Herpes virus infection [Unknown]
  - Intentional dose omission [Unknown]
